FAERS Safety Report 8430557-5 (Version None)
Quarter: 2012Q2

REPORT INFORMATION
  Report Type: 
  Country: None (occurrence: None)
  Receive Date: 20120612
  Receipt Date: 20120606
  Transmission Date: 20120825
  Serious: Yes (Other)
  Sender: FDA-Public Use
  Company Number: JP-GLAXOSMITHKLINE-B0802188A

PATIENT
  Sex: Male

DRUGS (3)
  1. FLUTICASONE PROPIONATE/SALMETEROL [Suspect]
     Indication: ASTHMA
     Dosage: 500MCG PER DAY
     Route: 055
     Dates: start: 20111202, end: 20111222
  2. FLUTICASONE PROPIONATE [Concomitant]
     Indication: ASTHMA
     Dosage: 400MCG PER DAY
     Route: 055
     Dates: start: 20111222, end: 20120119
  3. FLUTICASONE PROPIONATE/SALMETEROL [Suspect]
     Dosage: 500MCG PER DAY
     Route: 055
     Dates: start: 20120119, end: 20120317

REACTIONS (6)
  - PNEUMONIA [None]
  - LYMPHOCYTE STIMULATION TEST POSITIVE [None]
  - COUGH [None]
  - CHEST X-RAY ABNORMAL [None]
  - PYREXIA [None]
  - HYPERHIDROSIS [None]
